FAERS Safety Report 6542403-5 (Version None)
Quarter: 2010Q1

REPORT INFORMATION
  Report Type: 
  Country: None (occurrence: None)
  Receive Date: 20100119
  Receipt Date: 20100112
  Transmission Date: 20100710
  Serious: Yes (Hospitalization)
  Sender: FDA-Public Use
  Company Number: PHHO2009KR13614

PATIENT
  Sex: Male
  Weight: 60.4 kg

DRUGS (6)
  1. AMN107 AMN+CAP [Suspect]
     Indication: ACUTE LYMPHOCYTIC LEUKAEMIA
     Dosage: 800 MG, QD
     Route: 048
     Dates: start: 20090619, end: 20090715
  2. AMN107 AMN+CAP [Suspect]
     Dosage: 800 MG, QD
     Route: 048
     Dates: start: 20090810, end: 20090818
  3. AMN107 AMN+CAP [Suspect]
     Dosage: 800 MG, QD
     Route: 048
     Dates: start: 20090902, end: 20090909
  4. AMN107 AMN+CAP [Suspect]
     Dosage: 800 MG, QD
     Dates: start: 20090914
  5. AMN107 AMN+CAP [Suspect]
     Dosage: UNK
     Route: 048
     Dates: start: 20091014, end: 20091116
  6. AMN107 AMN+CAP [Suspect]
     Dosage: UNK
     Route: 048
     Dates: start: 20091230

REACTIONS (17)
  - ARTHRALGIA [None]
  - ASPIRATION PLEURAL CAVITY [None]
  - BLOOD PRESSURE DECREASED [None]
  - CONCOMITANT DISEASE PROGRESSION [None]
  - ESCHERICHIA INFECTION [None]
  - HAEMODIALYSIS [None]
  - JOINT EFFUSION [None]
  - NEUTROPHIL COUNT DECREASED [None]
  - PLEURAL EFFUSION [None]
  - PRODUCTIVE COUGH [None]
  - PULMONARY CONGESTION [None]
  - PYREXIA [None]
  - SEPSIS [None]
  - SEPTIC SHOCK [None]
  - SOMNOLENCE [None]
  - SUPRAVENTRICULAR TACHYCARDIA [None]
  - TRACHEOSTOMY [None]
